FAERS Safety Report 9932983 (Version 1)
Quarter: 2014Q1

REPORT INFORMATION
  Report Type: Spontaneous
  Country: US (occurrence: US)
  Receive Date: 20140228
  Receipt Date: 20140228
  Transmission Date: 20141002
  Serious: No
  Sender: FDA-Public Use
  Company Number: US-GLAXOSMITHKLINE-A1042704A

PATIENT
  Age: 56 Year
  Sex: Female

DRUGS (4)
  1. LAMICTAL [Suspect]
     Indication: BIPOLAR DISORDER
     Dosage: 200MG PER DAY
     Route: 048
     Dates: start: 201109, end: 20130918
  2. CYMBALTA [Concomitant]
  3. SIMVASTATIN [Concomitant]
  4. FAMODINE [Concomitant]

REACTIONS (2)
  - Rash [Recovering/Resolving]
  - Paraesthesia [Unknown]
